FAERS Safety Report 9435036 (Version 1)
Quarter: 2013Q3

REPORT INFORMATION
  Report Type: Report from Study
  Country: US (occurrence: US)
  Receive Date: 20130801
  Receipt Date: 20130801
  Transmission Date: 20140515
  Serious: Yes (Death)
  Sender: FDA-Public Use
  Company Number: PHEH2013US016245

PATIENT
  Age: 67 Year
  Sex: Male

DRUGS (10)
  1. AFINITOR [Suspect]
     Indication: RENAL CANCER
     Dosage: 10 MG, QD
     Route: 048
     Dates: start: 20130620
  2. ASPIRIN [Concomitant]
  3. CARVEDILOL [Concomitant]
  4. LIPITOR [Concomitant]
  5. MEGACE ORAL SUSPENSION [Concomitant]
  6. MULTI-VIT [Concomitant]
  7. PRILOSEC [Concomitant]
  8. RAMIPRIL [Concomitant]
  9. VITAMIN D3 [Concomitant]
  10. ZETIA [Concomitant]

REACTIONS (1)
  - Death [Fatal]
